FAERS Safety Report 9061331 (Version 1)
Quarter: 2013Q1

REPORT INFORMATION
  Report Type: Not Available
  Country: CH (occurrence: CH)
  Receive Date: 20130204
  Receipt Date: 20130204
  Transmission Date: 20140127
  Serious: Yes (Hospitalization)
  Sender: FDA-Public Use
  Company Number: CH-ASTELLAS-2013EU000871

PATIENT
  Age: 76 Year
  Sex: Female
  Weight: 58 kg

DRUGS (9)
  1. VESICARE [Suspect]
     Indication: URINARY INCONTINENCE
     Dosage: 5 MG, UID/QD
     Route: 048
     Dates: start: 20121206, end: 20121210
  2. LEPONEX [Suspect]
     Dosage: 25 MG, UID/QD
     Route: 048
     Dates: start: 20121206
  3. LEPONEX [Suspect]
     Dosage: 6.25 MG, UNKNOWN/D
     Route: 048
  4. ELTROXIN [Concomitant]
     Dosage: 0.075 MG, UID/QD
     Route: 048
  5. ENATEC [Concomitant]
     Dosage: 2.5 MG, UID/QD
     Route: 048
  6. CARVEDILOL [Concomitant]
     Dosage: 6.5 MG, UID/QD
     Route: 048
  7. DALMADORM [Concomitant]
     Dosage: 15 MG, UID/QD
     Route: 048
  8. TRANXILIUM [Concomitant]
     Dosage: 10 MG, UID/QD
     Route: 048
  9. TRANXILIUM [Concomitant]
     Dosage: 20 MG, UNKNOWN/D
     Route: 048

REACTIONS (6)
  - Syncope [Recovered/Resolved]
  - Cardiac arrest [Recovered/Resolved]
  - Pallor [None]
  - Oxygen saturation decreased [None]
  - Diastolic dysfunction [None]
  - Mitral valve incompetence [None]
